FAERS Safety Report 16945748 (Version 1)
Quarter: 2019Q4

REPORT INFORMATION
  Report Type: Spontaneous
  Country: US (occurrence: US)
  Receive Date: 20191021
  Receipt Date: 20191021
  Transmission Date: 20200122
  Serious: Yes (Other)
  Sender: FDA-Public Use
  Company Number: None

PATIENT
  Age: 57 Year
  Sex: Male

DRUGS (1)
  1. METFORMIN [Suspect]
     Active Substance: METFORMIN HYDROCHLORIDE

REACTIONS (4)
  - Blood creatinine increased [None]
  - Contraindicated product administered [None]
  - Blood urea increased [None]
  - Blood glucose increased [None]

NARRATIVE: CASE EVENT DATE: 20191021
